FAERS Safety Report 25106171 (Version 1)
Quarter: 2025Q1

REPORT INFORMATION
  Report Type: Spontaneous
  Country: AU (occurrence: AU)
  Receive Date: 20250321
  Receipt Date: 20250321
  Transmission Date: 20250409
  Serious: Yes (Other)
  Sender: GILEAD
  Company Number: AU-GILEAD-2025-0707101

PATIENT
  Age: 54 Year
  Sex: Male

DRUGS (3)
  1. GENVOYA [Suspect]
     Active Substance: COBICISTAT\ELVITEGRAVIR\EMTRICITABINE\TENOFOVIR ALAFENAMIDE FUMARATE
     Indication: HIV infection
     Dosage: 1 DOSAGE FORM,  1 A DAY AT NIGHT BEDTIME
     Route: 065
     Dates: start: 20200326
  2. STRIBILD [Suspect]
     Active Substance: COBICISTAT\ELVITEGRAVIR\EMTRICITABINE\TENOFOVIR DISOPROXIL FUMARATE
     Indication: HIV infection
     Route: 065
     Dates: start: 2016, end: 202003
  3. EFAVIRENZ [Suspect]
     Active Substance: EFAVIRENZ
     Indication: HIV infection
     Route: 065

REACTIONS (6)
  - Systemic lupus erythematosus [Unknown]
  - Skin burning sensation [Unknown]
  - Dysaesthesia [Unknown]
  - Eructation [Recovered/Resolved]
  - Peripheral coldness [Unknown]
  - Weight increased [Not Recovered/Not Resolved]
